FAERS Safety Report 10219412 (Version 1)
Quarter: 2014Q2

REPORT INFORMATION
  Report Type: Spontaneous
  Country: AR (occurrence: AR)
  Receive Date: 20140605
  Receipt Date: 20140605
  Transmission Date: 20141212
  Serious: Yes (Life-Threatening, Hospitalization, Other)
  Sender: FDA-Public Use
  Company Number: AR-GLAXOSMITHKLINE-A1075517A

PATIENT
  Age: 53 Year
  Sex: Female

DRUGS (1)
  1. ARZERRA [Suspect]
     Indication: WALDENSTROM^S MACROGLOBULINAEMIA
     Route: 042
     Dates: start: 20130205

REACTIONS (2)
  - Infusion related reaction [Recovered/Resolved]
  - Off label use [Not Recovered/Not Resolved]
